FAERS Safety Report 5905639-X (Version None)
Quarter: 2008Q4

REPORT INFORMATION
  Report Type: 
  Country: None (occurrence: None)
  Receive Date: 20081002
  Receipt Date: 20080730
  Transmission Date: 20090506
  Serious: No
  Sender: FDA-Public Use
  Company Number: US-BAYER-200830135NA

PATIENT
  Age: 65 Year
  Sex: Female

DRUGS (2)
  1. CLIMARA [Suspect]
     Indication: DRUG USE FOR UNKNOWN INDICATION
     Route: 062
     Dates: start: 19930101, end: 20080726
  2. PRAVASTATIN [Concomitant]
     Indication: HYPERCHOLESTEROLAEMIA

REACTIONS (4)
  - BREAST PAIN [None]
  - DYSMENORRHOEA [None]
  - HOT FLUSH [None]
  - METRORRHAGIA [None]
